FAERS Safety Report 7079403-5 (Version None)
Quarter: 2010Q4

REPORT INFORMATION
  Report Type: 
  Country: None (occurrence: None)
  Receive Date: 20101102
  Receipt Date: 20101022
  Transmission Date: 20110411
  Serious: Yes (Other)
  Sender: FDA-Public Use
  Company Number: US-JNJCH-2010024289

PATIENT
  Age: 71 Year
  Sex: Female
  Weight: 69.9 kg

DRUGS (2)
  1. VISINE-A [Suspect]
     Indication: SEASONAL ALLERGY
     Dosage: TEXT:ONE DROP IN EACH EYE ONCE
     Route: 047
     Dates: start: 20101019, end: 20101019
  2. BENADRYL [Concomitant]
     Indication: HYPERSENSITIVITY
     Dosage: TEXT:ONE EVERY FOUR HOURS
     Route: 065

REACTIONS (10)
  - ABNORMAL SENSATION IN EYE [None]
  - APPLICATION SITE BURN [None]
  - APPLICATION SITE DISCOLOURATION [None]
  - APPLICATION SITE EXFOLIATION [None]
  - CONDITION AGGRAVATED [None]
  - EYE PAIN [None]
  - EYE PRURITUS [None]
  - EYE SWELLING [None]
  - EYELID MARGIN CRUSTING [None]
  - OCULAR HYPERAEMIA [None]
